FAERS Safety Report 17551401 (Version 1)
Quarter: 2020Q1

REPORT INFORMATION
  Report Type: Report from Study
  Country: None (occurrence: GR)
  Receive Date: 20200317
  Receipt Date: 20200317
  Transmission Date: 20200409
  Serious: Yes (Hospitalization)
  Sender: FDA-Public Use
  Company Number: GR-ABBVIE-20K-066-3323107-00

PATIENT
  Age: 78 Year
  Sex: Male
  Weight: 51 kg

DRUGS (17)
  1. COMTAN [Concomitant]
     Active Substance: ENTACAPONE
     Indication: PARKINSON^S DISEASE
     Route: 048
  2. REQUIP [Concomitant]
     Active Substance: ROPINIROLE HYDROCHLORIDE
     Indication: PARKINSON^S DISEASE
     Route: 048
  3. CORTINEFF [Concomitant]
     Active Substance: FLUDROCORTISONE
     Indication: PRODUCT USED FOR UNKNOWN INDICATION
     Route: 048
     Dates: end: 20200213
  4. VITAMIN B12 [Concomitant]
     Active Substance: CYANOCOBALAMIN
     Indication: ANAEMIA
     Route: 048
  5. DUODOPA [Suspect]
     Active Substance: CARBIDOPA\LEVODOPA
     Indication: PARKINSON^S DISEASE
     Dosage: MORNING DOSE: 9.5ML; CONTINUOUS RATE: 3.6ML/H; EXTRA DOSE: 1.5ML
     Route: 050
     Dates: start: 20180117
  6. SEROQUEL [Concomitant]
     Active Substance: QUETIAPINE FUMARATE
     Indication: ORGANIC BRAIN SYNDROME
     Route: 048
  7. DEMOREN [Concomitant]
     Active Substance: ALBUTEROL SULFATE\IPRATROPIUM BROMIDE
     Indication: CHRONIC OBSTRUCTIVE PULMONARY DISEASE
     Dosage: (0.5+2.5)MG
     Route: 048
  8. LYRICA [Concomitant]
     Active Substance: PREGABALIN
     Indication: ORGANIC BRAIN SYNDROME
     Route: 048
  9. FORTATHRIN [Concomitant]
     Active Substance: INDOMETHACIN
     Indication: OSTEOARTHRITIS
     Route: 048
  10. ORBIMAG [Concomitant]
     Indication: MUSCLE SPASMS
     Route: 048
  11. MADOPAR [Concomitant]
     Active Substance: BENSERAZIDE HYDROCHLORIDE\LEVODOPA
     Indication: PARKINSON^S DISEASE
     Dosage: (200+50)MG
     Route: 048
  12. TANILAS [Concomitant]
     Indication: CONSTIPATION
     Route: 048
  13. TRIATEC [Concomitant]
     Indication: CARDIAC FAILURE
     Route: 048
  14. ACTONEL [Concomitant]
     Active Substance: RISEDRONATE SODIUM
     Indication: OSTEOPENIA
     Route: 048
  15. IDEOS [Concomitant]
     Active Substance: CALCIUM CARBONATE\CHOLECALCIFEROL
     Indication: OSTEOPENIA
     Route: 048
  16. ARTICLOX [Concomitant]
     Indication: ANAEMIA
     Route: 048
  17. BESPAR [Concomitant]
     Active Substance: BUSPIRONE HYDROCHLORIDE
     Indication: ORGANIC BRAIN SYNDROME
     Route: 048

REACTIONS (3)
  - Pyrexia [Recovered/Resolved]
  - Breath sounds abnormal [Recovered/Resolved]
  - Cardiac failure [Unknown]

NARRATIVE: CASE EVENT DATE: 20200301
